FAERS Safety Report 15958256 (Version 1)
Quarter: 2019Q1

REPORT INFORMATION
  Report Type: Spontaneous
  Country: US (occurrence: US)
  Receive Date: 20190213
  Receipt Date: 20190213
  Transmission Date: 20190417
  Serious: No
  Sender: FDA-Public Use
  Company Number: US-009507513-1901USA011055

PATIENT
  Age: 76 Year
  Sex: Female

DRUGS (4)
  1. BELSOMRA [Suspect]
     Active Substance: SUVOREXANT
     Indication: SLEEP DISORDER
     Dosage: 10 MILLIGRAM, 1 TABLET PER NIGHT
     Route: 048
     Dates: start: 201810, end: 201810
  2. LORAZEPAM. [Concomitant]
     Active Substance: LORAZEPAM
     Dosage: 1 MILLIGRAM 4 TIMES A DAY
     Route: 048
  3. TEMAZEPAM. [Suspect]
     Active Substance: TEMAZEPAM
     Indication: SLEEP DISORDER
     Dosage: 15 MILLIGRAM, 1 TIME PER NIGHT
     Route: 048
     Dates: start: 20190114
  4. LORAZEPAM. [Concomitant]
     Active Substance: LORAZEPAM
     Dosage: 1 MILLIGRAM, THREE TIMES A DAY
     Route: 048

REACTIONS (3)
  - Drug ineffective [Unknown]
  - Poor quality sleep [Unknown]
  - Respiratory disorder [Unknown]

NARRATIVE: CASE EVENT DATE: 201810
